FAERS Safety Report 7222935-7 (Version None)
Quarter: 2011Q1

REPORT INFORMATION
  Report Type: 
  Country: None (occurrence: None)
  Receive Date: 20110106
  Receipt Date: 20110106
  Transmission Date: 20110831
  Serious: Yes (Hospitalization)
  Sender: FDA-Public Use
  Company Number: None

PATIENT
  Age: 68 Year
  Sex: Male
  Weight: 80 kg

DRUGS (20)
  1. ATIVAN [Concomitant]
  2. SENNA + [Concomitant]
  3. TOPROL-XL [Concomitant]
  4. PRAVACHOL [Concomitant]
  5. PAROXETINE HCL [Concomitant]
  6. TYLENOL-500 [Concomitant]
  7. MYLANTA [Concomitant]
  8. DILANTIN [Suspect]
     Indication: CONVULSION
     Dosage: 200MG DAILY PO RECENT
     Route: 048
  9. ZYPREXA [Concomitant]
  10. DILANTIN [Suspect]
     Indication: CONVULSION
     Dosage: 300MG DAILY PO CHRONIC
     Route: 048
  11. ASPIRIN [Concomitant]
  12. VIT D [Concomitant]
  13. MOM [Concomitant]
  14. NITROGLYCERIN [Concomitant]
  15. APAP TAB [Concomitant]
  16. NEOSPORIN [Concomitant]
  17. NORVASC [Concomitant]
  18. GUAIFENESIN [Concomitant]
  19. LISINOPRIL [Concomitant]
  20. LOPERAMIDE [Concomitant]

REACTIONS (1)
  - TOXICITY TO VARIOUS AGENTS [None]
